FAERS Safety Report 4334393-0 (Version None)
Quarter: 2004Q1

REPORT INFORMATION
  Report Type: 
  Country: None (occurrence: None)
  Receive Date: 20040326
  Receipt Date: 20040203
  Transmission Date: 20041129
  Serious: No
  Sender: FDA-Public Use
  Company Number: US-JNJFOC-20040200850

PATIENT
  Age: 78 Year
  Sex: Male

DRUGS (4)
  1. REMINYL [Suspect]
     Indication: DEMENTIA ALZHEIMER'S TYPE
     Dosage: 12 MG, 2 IN 1 DAY, ORAL
     Route: 048
     Dates: start: 20020101
  2. ATENOLOL [Concomitant]
  3. ZOCAR (ZOCOR CARDIO ASS) TABLETS [Concomitant]
  4. MEMANTINE HCL [Concomitant]

REACTIONS (3)
  - ACTIVITIES OF DAILY LIVING IMPAIRED [None]
  - MEMORY IMPAIRMENT [None]
  - MUSCLE RIGIDITY [None]
